FAERS Safety Report 4557036-X (Version None)
Quarter: 2005Q1

REPORT INFORMATION
  Report Type: 
  Country: None (occurrence: None)
  Receive Date: 20050118
  Receipt Date: 20050106
  Transmission Date: 20050727
  Serious: No
  Sender: FDA-Public Use
  Company Number: 2005UW00362

PATIENT
  Age: 46 Year
  Sex: Male

DRUGS (4)
  1. CRESTOR [Suspect]
     Dosage: 10 MG DAILY PO
     Route: 048
  2. COVERSYL [Concomitant]
  3. FLONASE [Concomitant]
  4. ZANTAC [Concomitant]

REACTIONS (1)
  - PANCREATITIS [None]
